FAERS Safety Report 22014848 (Version 3)
Quarter: 2023Q2

REPORT INFORMATION
  Report Type: Other
  Country: FR (occurrence: FR)
  Receive Date: 20230221
  Receipt Date: 20230410
  Transmission Date: 20230722
  Serious: Yes (Life-Threatening, Hospitalization)
  Sender: FDA-Public Use
  Company Number: FR-JNJFOC-20230203990

PATIENT
  Age: 70 Year
  Sex: Female

DRUGS (5)
  1. RITUXIMAB [Suspect]
     Active Substance: RITUXIMAB
     Indication: Marginal zone lymphoma
     Dosage: ON DAY 1
     Route: 042
  2. RITUXIMAB [Suspect]
     Active Substance: RITUXIMAB
     Indication: Marginal zone lymphoma
     Dosage: 1400MG SUBCUTANEOUSLY (SC) ON DAYS 8-15-21 FOR THE FIRST CYCLE, THEN 1400MG SC EVERY 28 DAYS FOR THE
     Route: 058
     Dates: end: 20210705
  3. IBRUTINIB [Suspect]
     Active Substance: IBRUTINIB
     Indication: Marginal zone lymphoma
     Dosage: 5 CYCLES
     Route: 065
     Dates: start: 202102, end: 202107
  4. LEVOFLOXACIN [Concomitant]
     Active Substance: LEVOFLOXACIN
  5. CEFTRIAXONE [Concomitant]
     Active Substance: CEFTRIAXONE

REACTIONS (3)
  - Haemolytic anaemia [Recovered/Resolved]
  - Disseminated strongyloidiasis [Recovered/Resolved]
  - Drug effective for unapproved indication [Unknown]
